FAERS Safety Report 7387480-7 (Version None)
Quarter: 2011Q1

REPORT INFORMATION
  Report Type: 
  Country: None (occurrence: None)
  Receive Date: 20110331
  Receipt Date: 20110328
  Transmission Date: 20110831
  Serious: Yes (Other)
  Sender: FDA-Public Use
  Company Number: VE-PFIZER INC-2011069921

PATIENT
  Age: 66 Year
  Sex: Female

DRUGS (6)
  1. INSULIN [Concomitant]
  2. NIFEDIPINE [Concomitant]
  3. HYZAAR [Concomitant]
  4. CARVEDILOL [Concomitant]
  5. ASPIRIN [Concomitant]
  6. LIPITOR [Suspect]
     Indication: HYPERCHOLESTEROLAEMIA
     Dosage: 40 MG, 2X/DAY
     Route: 048
     Dates: start: 20090101

REACTIONS (1)
  - DIABETES MELLITUS [None]
